FAERS Safety Report 7702618-7 (Version None)
Quarter: 2011Q3

REPORT INFORMATION
  Report Type: 
  Country: None (occurrence: None)
  Receive Date: 20110823
  Receipt Date: 20110816
  Transmission Date: 20111222
  Serious: No
  Sender: FDA-Public Use
  Company Number: US-BIOGENIDEC-2011BI031388

PATIENT
  Sex: Female

DRUGS (2)
  1. AVONEX [Suspect]
     Indication: MULTIPLE SCLEROSIS
     Route: 030
     Dates: start: 20110701
  2. AVONEX [Suspect]
     Route: 030
     Dates: start: 20030601, end: 20030101

REACTIONS (18)
  - INSOMNIA [None]
  - ASTHENIA [None]
  - HYPERHIDROSIS [None]
  - PAIN [None]
  - INJECTION SITE HAEMATOMA [None]
  - PARAESTHESIA [None]
  - FATIGUE [None]
  - TREMOR [None]
  - CONTUSION [None]
  - FIBROMYALGIA [None]
  - MENTAL IMPAIRMENT [None]
  - DEPRESSION [None]
  - HYPOAESTHESIA [None]
  - INJECTION SITE HAEMORRHAGE [None]
  - OROPHARYNGEAL PAIN [None]
  - GAIT DISTURBANCE [None]
  - OEDEMA PERIPHERAL [None]
  - NAUSEA [None]
